FAERS Safety Report 5334242-8 (Version None)
Quarter: 2007Q2

REPORT INFORMATION
  Report Type: 
  Country: None (occurrence: None)
  Receive Date: 20070525
  Receipt Date: 20070522
  Transmission Date: 20071010
  Serious: Yes (Hospitalization)
  Sender: FDA-Public Use
  Company Number: SEWYE717524MAY07

PATIENT
  Sex: Female

DRUGS (6)
  1. EFFEXOR [Suspect]
     Indication: DEPRESSION
     Route: 048
     Dates: start: 20070206, end: 20070201
  2. EFFEXOR [Suspect]
     Dosage: 150 MG PER DAY
     Route: 048
     Dates: start: 20070201, end: 20070222
  3. ESTRIOL [Concomitant]
  4. REMERON [Concomitant]
  5. ENALAPRIL [Concomitant]
  6. BACTRIM DS [Concomitant]

REACTIONS (2)
  - ERYTHEMA [None]
  - PARKINSONISM [None]
